FAERS Safety Report 20337066 (Version 1)
Quarter: 2022Q1

REPORT INFORMATION
  Report Type: Spontaneous
  Country: US (occurrence: US)
  Receive Date: 20220114
  Receipt Date: 20220114
  Transmission Date: 20220423
  Serious: Yes (Other)
  Sender: FDA-Public Use
  Company Number: US-TEVA-2022-US-1998068

PATIENT
  Age: 67 Year
  Sex: Female

DRUGS (2)
  1. NUVIGIL [Suspect]
     Active Substance: ARMODAFINIL
     Indication: Hypersomnia
     Dosage: 7 TO 10 YEARS AGO
     Route: 065
  2. NUVIGIL [Suspect]
     Active Substance: ARMODAFINIL
     Indication: Cognitive disorder
     Dosage: NUVIGIL 150 MG STRENGTH CUT IN HALF FOR A DOSE OF 75 MG
     Route: 065
     Dates: start: 20220104

REACTIONS (7)
  - Post concussion syndrome [Unknown]
  - Road traffic accident [Unknown]
  - Headache [Not Recovered/Not Resolved]
  - Nausea [Not Recovered/Not Resolved]
  - Memory impairment [Unknown]
  - Off label use [Unknown]
  - Wrong technique in product usage process [Unknown]

NARRATIVE: CASE EVENT DATE: 20220104
